FAERS Safety Report 6110009-8 (Version None)
Quarter: 2009Q1

REPORT INFORMATION
  Report Type: 
  Country: None (occurrence: None)
  Receive Date: 20090310
  Receipt Date: 20081119
  Transmission Date: 20090719
  Serious: No
  Sender: FDA-Public Use
  Company Number: A0757182A

PATIENT
  Age: 38 Year
  Sex: Female

DRUGS (1)
  1. NICORETTE [Suspect]
     Dates: start: 20080820, end: 20080902

REACTIONS (2)
  - EXPIRED DRUG ADMINISTERED [None]
  - TOOTHACHE [None]
